FAERS Safety Report 12120239 (Version 2)
Quarter: 2016Q1

REPORT INFORMATION
  Report Type: Spontaneous
  Country: US (occurrence: US)
  Receive Date: 20160226
  Receipt Date: 20160301
  Transmission Date: 20160526
  Serious: Yes (Other)
  Sender: FDA-Public Use
  Company Number: US-MEDTRONIC-1048416

PATIENT
  Age: 45 Year
  Sex: Male

DRUGS (1)
  1. BACLOFEN UNKNOWN [Suspect]
     Active Substance: BACLOFEN
     Indication: MUSCLE SPASTICITY
     Route: 037

REACTIONS (4)
  - Implant site discharge [Unknown]
  - Skin atrophy [Unknown]
  - Implant site discolouration [Unknown]
  - Implant site erosion [Unknown]

NARRATIVE: CASE EVENT DATE: 201508
